FAERS Safety Report 10076592 (Version 1)
Quarter: 2014Q2

REPORT INFORMATION
  Report Type: Spontaneous
  Country: US (occurrence: US)
  Receive Date: 20140414
  Receipt Date: 20140414
  Transmission Date: 20141212
  Serious: Yes (Other)
  Sender: FDA-Public Use
  Company Number: US-PFIZER INC-2014103116

PATIENT
  Age: 49 Year
  Sex: Female
  Weight: 61.22 kg

DRUGS (2)
  1. CHANTIX [Suspect]
     Dosage: 0.5 MG, UNK
     Dates: start: 2014, end: 2014
  2. CHANTIX [Suspect]
     Dosage: 1 MG, UNK
     Dates: start: 2014, end: 2014

REACTIONS (4)
  - Homicidal ideation [Unknown]
  - Fear [Unknown]
  - Abnormal dreams [Unknown]
  - Abnormal dreams [Unknown]
